FAERS Safety Report 16338375 (Version 6)
Quarter: 2022Q3

REPORT INFORMATION
  Report Type: Report from Study
  Country: US (occurrence: None)
  Receive Date: 20190521
  Receipt Date: 20220705
  Transmission Date: 20221027
  Serious: Yes (Hospitalization)
  Sender: FDA-Public Use
  Company Number: US-ROCHE-2319245

PATIENT
  Age: 80 Year
  Sex: Female
  Weight: 57.2 kg

DRUGS (70)
  1. ATEZOLIZUMAB [Suspect]
     Active Substance: ATEZOLIZUMAB
     Indication: Malignant peritoneal neoplasm
     Dosage: MOST RECENT DOSE OF BLINDED ATEZOLIZUMAB: 09/APR/2019
     Route: 041
     Dates: start: 20190108
  2. BEVACIZUMAB [Suspect]
     Active Substance: BEVACIZUMAB
     Indication: Malignant peritoneal neoplasm
     Dosage: MOST RECENT DOSE OF BEVACIZUMAB (895.5 MG ONCE PER 3 WEEKS): 09/APR/2019
     Route: 042
     Dates: start: 20190129
  3. PACLITAXEL [Suspect]
     Active Substance: PACLITAXEL
     Indication: Malignant peritoneal neoplasm
     Dosage: MOST RECENT DOSE OF PACLITAXEL (280 MG ONCE PER 3 WEEKS): 09/APR/2019
     Route: 042
     Dates: start: 20190108
  4. CARBOPLATIN [Suspect]
     Active Substance: CARBOPLATIN
     Indication: Malignant peritoneal neoplasm
     Dosage: MOST RECENT DOSE OF CARBOPLATIN (512 MG ONCE PER 3 WEEKS): 09/APR/2019
     Route: 042
     Dates: start: 20190108
  5. NEURONTIN [Concomitant]
     Active Substance: GABAPENTIN
     Indication: Post herpetic neuralgia
     Dosage: POSTHERPETIC NEURALGIA PAIN
     Dates: start: 20180615
  6. LIPITOR [Concomitant]
     Active Substance: ATORVASTATIN CALCIUM
     Indication: Hyperlipidaemia
     Dates: start: 20170824
  7. LIPITOR [Concomitant]
     Active Substance: ATORVASTATIN CALCIUM
     Dates: start: 20190514, end: 20190514
  8. TYLENOL [Concomitant]
     Active Substance: ACETAMINOPHEN
     Indication: Arthralgia
     Dosage: EXTRA STRENGTH
  9. TYLENOL [Concomitant]
     Active Substance: ACETAMINOPHEN
     Indication: Abdominal pain
     Dates: start: 20190504, end: 20190507
  10. BACLOFEN [Concomitant]
     Active Substance: BACLOFEN
     Indication: Arthritis
     Dates: start: 20091209
  11. CANNABIS SATIVA SUBSP. INDICA TOP [Concomitant]
     Active Substance: CANNABIS SATIVA SUBSP. INDICA TOP
     Dosage: EDIBLE
     Dates: start: 20190110
  12. HEPARIN SODIUM [Concomitant]
     Active Substance: HEPARIN SODIUM
     Dosage: CENTRAL LINE PER PROTOCOL
     Dates: start: 20190218
  13. REGLAN [Concomitant]
     Active Substance: METOCLOPRAMIDE HYDROCHLORIDE
     Indication: Nausea
     Dates: start: 20190118
  14. REGLAN [Concomitant]
     Active Substance: METOCLOPRAMIDE HYDROCHLORIDE
     Indication: Vomiting
     Dates: start: 20190426
  15. REGLAN [Concomitant]
     Active Substance: METOCLOPRAMIDE HYDROCHLORIDE
     Dates: start: 20190426, end: 20190426
  16. REGLAN [Concomitant]
     Active Substance: METOCLOPRAMIDE HYDROCHLORIDE
     Dates: start: 20190503, end: 20190503
  17. ATIVAN [Concomitant]
     Active Substance: LORAZEPAM
     Indication: Nausea
     Dates: start: 20190219
  18. ATIVAN [Concomitant]
     Active Substance: LORAZEPAM
     Indication: Vomiting
     Dates: start: 20190426, end: 20190426
  19. ATIVAN [Concomitant]
     Active Substance: LORAZEPAM
     Dates: start: 20190429, end: 20190429
  20. ATIVAN [Concomitant]
     Active Substance: LORAZEPAM
     Dates: start: 20190429, end: 20190429
  21. ATIVAN [Concomitant]
     Active Substance: LORAZEPAM
     Dates: start: 20190503, end: 20190505
  22. ATIVAN [Concomitant]
     Active Substance: LORAZEPAM
     Dates: start: 20190513, end: 20190513
  23. ROCEPHIN [Concomitant]
     Active Substance: CEFTRIAXONE SODIUM
     Indication: Urinary tract infection
     Dates: start: 20190425, end: 20190425
  24. ROCEPHIN [Concomitant]
     Active Substance: CEFTRIAXONE SODIUM
     Dates: start: 20190426, end: 20190429
  25. LOVENOX [Concomitant]
     Active Substance: ENOXAPARIN SODIUM
     Indication: Prophylaxis
     Dates: start: 20190425, end: 20190429
  26. LOVENOX [Concomitant]
     Active Substance: ENOXAPARIN SODIUM
     Dates: start: 20190501, end: 20190501
  27. LOVENOX [Concomitant]
     Active Substance: ENOXAPARIN SODIUM
     Dates: start: 20190503, end: 20190505
  28. MORPHINE [Concomitant]
     Active Substance: MORPHINE
     Indication: Abdominal pain
     Dates: start: 20190425, end: 20190428
  29. MORPHINE [Concomitant]
     Active Substance: MORPHINE
     Dates: start: 20190425, end: 20190425
  30. MORPHINE [Concomitant]
     Active Substance: MORPHINE
     Dates: start: 20190427, end: 20190427
  31. ZOFRAN [Concomitant]
     Active Substance: ONDANSETRON HYDROCHLORIDE
     Indication: Nausea
     Dates: start: 20190425, end: 20190425
  32. SODIUM CHLORIDE [Concomitant]
     Active Substance: SODIUM CHLORIDE
     Indication: Prophylaxis
     Route: 040
     Dates: start: 20190425, end: 20190425
  33. SODIUM CHLORIDE [Concomitant]
     Active Substance: SODIUM CHLORIDE
     Dates: start: 20190428, end: 20190428
  34. SODIUM CHLORIDE [Concomitant]
     Active Substance: SODIUM CHLORIDE
     Route: 040
     Dates: start: 20190429, end: 20190429
  35. SODIUM CHLORIDE [Concomitant]
     Active Substance: SODIUM CHLORIDE
     Dates: start: 20190430, end: 20190430
  36. SODIUM CHLORIDE [Concomitant]
     Active Substance: SODIUM CHLORIDE
     Route: 040
     Dates: start: 20190502, end: 20190502
  37. SODIUM CHLORIDE [Concomitant]
     Active Substance: SODIUM CHLORIDE
     Route: 040
     Dates: start: 20190503, end: 20190503
  38. SODIUM CHLORIDE [Concomitant]
     Active Substance: SODIUM CHLORIDE
     Dates: start: 20190504, end: 20190505
  39. OFIRMEV [Concomitant]
     Active Substance: ACETAMINOPHEN
     Indication: Abdominal pain
     Dates: start: 20190426, end: 20190426
  40. OFIRMEV [Concomitant]
     Active Substance: ACETAMINOPHEN
     Dates: start: 20190428, end: 20190428
  41. OFIRMEV [Concomitant]
     Active Substance: ACETAMINOPHEN
     Dates: start: 20190428, end: 20190428
  42. OFIRMEV [Concomitant]
     Active Substance: ACETAMINOPHEN
     Dates: start: 20190429, end: 20190505
  43. KCL [Concomitant]
     Active Substance: POTASSIUM CHLORIDE
     Indication: Hyponatraemia
     Dates: start: 20190426, end: 20190428
  44. KCL [Concomitant]
     Active Substance: POTASSIUM CHLORIDE
     Dates: start: 20190429, end: 20190503
  45. PEPTO-BISMOL [Concomitant]
     Active Substance: BISMUTH SUBSALICYLATE
     Indication: Gastrooesophageal reflux disease
     Dates: start: 20190426, end: 20190427
  46. PEPTO-BISMOL [Concomitant]
     Active Substance: BISMUTH SUBSALICYLATE
     Dates: start: 20190428, end: 20190429
  47. COLACE [Concomitant]
     Active Substance: DOCUSATE SODIUM
     Indication: Constipation
     Dates: start: 20190427, end: 20190427
  48. COLACE [Concomitant]
     Active Substance: DOCUSATE SODIUM
     Indication: Small intestinal obstruction
  49. LACTULOSE [Concomitant]
     Active Substance: LACTULOSE
     Indication: Constipation
     Route: 048
     Dates: start: 20190428, end: 20190428
  50. LACTULOSE [Concomitant]
     Active Substance: LACTULOSE
     Indication: Small intestinal obstruction
  51. PEPCID [Concomitant]
     Active Substance: FAMOTIDINE
     Indication: Gastrooesophageal reflux disease
     Dates: start: 20190429, end: 20190503
  52. PEPCID [Concomitant]
     Active Substance: FAMOTIDINE
     Dates: start: 20190504, end: 20190504
  53. MAGNESIUM SULFATE [Concomitant]
     Active Substance: MAGNESIUM SULFATE
     Indication: Hypomagnesaemia
     Dates: start: 20190429, end: 20190429
  54. MAGNESIUM SULFATE [Concomitant]
     Active Substance: MAGNESIUM SULFATE
     Dates: start: 20190430, end: 20190430
  55. MAGNESIUM SULFATE [Concomitant]
     Active Substance: MAGNESIUM SULFATE
     Dates: start: 20190501, end: 20190501
  56. MAGNESIUM SULFATE [Concomitant]
     Active Substance: MAGNESIUM SULFATE
     Dates: start: 20190502, end: 20190502
  57. MAGNESIUM SULFATE [Concomitant]
     Active Substance: MAGNESIUM SULFATE
     Dates: start: 20190503, end: 20190503
  58. MAGNESIUM SULFATE [Concomitant]
     Active Substance: MAGNESIUM SULFATE
     Dates: start: 20190504, end: 20190504
  59. POTASSIUM CHLORIDE [Concomitant]
     Active Substance: POTASSIUM CHLORIDE
     Indication: Hypokalaemia
     Dates: start: 20190429, end: 20190430
  60. POTASSIUM CHLORIDE [Concomitant]
     Active Substance: POTASSIUM CHLORIDE
     Dates: start: 20190430, end: 20190430
  61. POTASSIUM CHLORIDE [Concomitant]
     Active Substance: POTASSIUM CHLORIDE
     Dates: start: 20190505, end: 20190505
  62. TRANSDERM SCOP [Concomitant]
     Active Substance: SCOPOLAMINE
     Indication: Nausea
     Dates: start: 20190429, end: 20190505
  63. TRANSDERM SCOP [Concomitant]
     Active Substance: SCOPOLAMINE
     Indication: Vomiting
  64. CATAPRES [Concomitant]
     Active Substance: CLONIDINE HYDROCHLORIDE
     Indication: Blood pressure systolic
     Dates: start: 20190430, end: 20190503
  65. CATAPRES [Concomitant]
     Active Substance: CLONIDINE HYDROCHLORIDE
     Dates: start: 20190505, end: 20190505
  66. PROCHLORPERAZINE EDISYLATE [Concomitant]
     Active Substance: PROCHLORPERAZINE EDISYLATE
     Indication: Nausea
     Dates: start: 20190430, end: 20190430
  67. PROCHLORPERAZINE EDISYLATE [Concomitant]
     Active Substance: PROCHLORPERAZINE EDISYLATE
     Indication: Vomiting
     Dates: start: 20190503, end: 20190504
  68. CEPACOL SORE THROAT [BENZOCAINE;MENTHOL] [Concomitant]
     Dates: start: 20190503, end: 20190503
  69. LACTATED RINGERS SOLUTION [Concomitant]
     Active Substance: CALCIUM CHLORIDE\POTASSIUM CHLORIDE\SODIUM CHLORIDE\SODIUM LACTATE
     Indication: Small intestinal obstruction
     Route: 040
     Dates: start: 20190429, end: 20190429
  70. IMODIUM [Concomitant]
     Active Substance: LOPERAMIDE HYDROCHLORIDE
     Indication: Diarrhoea
     Dates: start: 20190407

REACTIONS (1)
  - Transient ischaemic attack [Recovered/Resolved]

NARRATIVE: CASE EVENT DATE: 20190513
